FAERS Safety Report 14205457 (Version 1)
Quarter: 2017Q4

REPORT INFORMATION
  Report Type: Spontaneous
  Country: US (occurrence: US)
  Receive Date: 20171120
  Receipt Date: 20171120
  Transmission Date: 20180321
  Serious: Yes (Death)
  Sender: FDA-Public Use
  Company Number: US-SA-2017SA224436

PATIENT
  Age: 30 Year
  Sex: Male

DRUGS (5)
  1. DIPHENHYDRAMINE. [Suspect]
     Active Substance: DIPHENHYDRAMINE
     Route: 065
  2. HEROIN [Suspect]
     Active Substance: DIAMORPHINE
     Route: 065
  3. CITALOPRAM [Suspect]
     Active Substance: CITALOPRAM HYDROBROMIDE
     Route: 065
  4. DEXTROMETHORPHAN HYDROBROMIDE. [Suspect]
     Active Substance: DEXTROMETHORPHAN HYDROBROMIDE
     Route: 065
  5. COCAINE [Suspect]
     Active Substance: COCAINE
     Route: 065

REACTIONS (13)
  - Hepatotoxicity [Fatal]
  - Leukocytosis [Fatal]
  - Coma [Fatal]
  - Depressed level of consciousness [Fatal]
  - Blister [Fatal]
  - Toxicity to various agents [Fatal]
  - Metabolic acidosis [Fatal]
  - Pneumonia aspiration [Fatal]
  - Hyperreflexia [Fatal]
  - Coagulopathy [Fatal]
  - Acute kidney injury [Fatal]
  - Tachycardia [Fatal]
  - Rhabdomyolysis [Fatal]
